FAERS Safety Report 16396802 (Version 6)
Quarter: 2020Q4

REPORT INFORMATION
  Report Type: Report from Study
  Country: BR (occurrence: BR)
  Receive Date: 20190606
  Receipt Date: 20201120
  Transmission Date: 20210113
  Serious: Yes (Other)
  Sender: FDA-Public Use
  Company Number: BR-EMD SERONO-9094538

PATIENT
  Age: 32 Year
  Sex: Female

DRUGS (5)
  1. REBIF [Suspect]
     Active Substance: INTERFERON BETA-1A
     Route: 058
     Dates: start: 2016, end: 201801
  2. REBIF [Suspect]
     Active Substance: INTERFERON BETA-1A
     Indication: MULTIPLE SCLEROSIS
     Route: 058
     Dates: start: 201505
  3. REBIF [Suspect]
     Active Substance: INTERFERON BETA-1A
     Route: 058
     Dates: start: 20190528
  4. BIO-MANGUINHOS BETAINTERFERONA 1A 44 MCG [Suspect]
     Active Substance: INTERFERON BETA-1A
     Dosage: THERAPY START DATE : NOV 2020
     Route: 058
  5. BIO-MANGUINHOS BETAINTERFERONA 1A 44 MCG [Suspect]
     Active Substance: INTERFERON BETA-1A
     Indication: MULTIPLE SCLEROSIS
     Dosage: THERAPY START DATE : 07 OCT 2019
     Route: 058

REACTIONS (15)
  - Postprandial hypoglycaemia [Recovering/Resolving]
  - Headache [Unknown]
  - Pre-eclampsia [Recovered/Resolved]
  - Breast feeding [Not Recovered/Not Resolved]
  - Caesarean section [Recovered/Resolved]
  - Haemorrhage [Unknown]
  - Coagulopathy [Unknown]
  - Nasopharyngitis [Unknown]
  - Live birth [Recovered/Resolved]
  - Anxiety [Recovering/Resolving]
  - Injection site haemorrhage [Unknown]
  - Anaemia [Recovered/Resolved]
  - Shock haemorrhagic [Recovered/Resolved]
  - Contusion [Unknown]
  - Maternal exposure during pregnancy [Recovered/Resolved]

NARRATIVE: CASE EVENT DATE: 201712
